FAERS Safety Report 15724959 (Version 2)
Quarter: 2018Q4

REPORT INFORMATION
  Report Type: Report from Study
  Country: US (occurrence: US)
  Receive Date: 20181214
  Receipt Date: 20181231
  Transmission Date: 20190205
  Serious: Yes (Hospitalization)
  Sender: FDA-Public Use
  Company Number: US-ACTELION-A-NJ2018-179081

PATIENT
  Age: 44 Year
  Sex: Male

DRUGS (18)
  1. PREDNISONE. [Concomitant]
     Active Substance: PREDNISONE
     Dosage: 10 MG, QD
     Dates: start: 20181115
  2. AMLODIPINE [Interacting]
     Active Substance: AMLODIPINE BESYLATE
     Indication: PRODUCT USED FOR UNKNOWN INDICATION
     Dosage: UNK
     Route: 065
  3. AMLODIPINE W/VALSARTAN [Concomitant]
     Active Substance: AMLODIPINE\VALSARTAN
     Indication: PRODUCT USED FOR UNKNOWN INDICATION
     Dosage: 5 MG/320 MG, QD
     Dates: start: 2008
  4. BENTYL [Concomitant]
     Active Substance: DICYCLOMINE HYDROCHLORIDE
     Dosage: 20 MG, QD AND PRN
     Dates: start: 2008
  5. ADVAIR HFA [Concomitant]
     Active Substance: FLUTICASONE PROPIONATE\SALMETEROL XINAFOATE
     Dosage: UNK
     Dates: start: 20181115
  6. ALBUTEROL HFA [Concomitant]
     Active Substance: ALBUTEROL SULFATE
     Dosage: 4 PUFFS DAILY
  7. AUGMENTIN [Concomitant]
     Active Substance: AMOXICILLIN\CLAVULANATE POTASSIUM
  8. OPSUMIT [Suspect]
     Active Substance: MACITENTAN
     Indication: PULMONARY ARTERIAL HYPERTENSION
     Dosage: 10 MG, QD
     Route: 048
     Dates: start: 201808, end: 20181114
  9. WELLBUTRIN [Concomitant]
     Active Substance: BUPROPION HYDROCHLORIDE
     Dosage: 150 MG, QD
     Dates: start: 2008
  10. PRILOSEC [Concomitant]
     Active Substance: OMEPRAZOLE MAGNESIUM
     Dosage: 20 MG, QD
     Dates: start: 2008
  11. BENTYL [Concomitant]
     Active Substance: DICYCLOMINE HYDROCHLORIDE
     Dosage: 20 MG, QD AND PRN
     Dates: start: 2008
  12. TRAMADOL. [Concomitant]
     Active Substance: TRAMADOL
     Dosage: 50 MG, PRN
  13. LASIX [Concomitant]
     Active Substance: FUROSEMIDE
     Dosage: 10 MG, UNK
     Dates: start: 2008
  14. AMBIEN [Concomitant]
     Active Substance: ZOLPIDEM TARTRATE
     Dosage: 5 MG, PRN
     Dates: start: 2008
  15. FLONASE [Concomitant]
     Active Substance: FLUTICASONE PROPIONATE
     Dosage: UNK
     Dates: start: 20181115
  16. TESSALON [Concomitant]
     Active Substance: BENZONATATE
  17. AMLODIPINE W/VALSARTAN [Concomitant]
     Active Substance: AMLODIPINE\VALSARTAN
     Dosage: UNK
     Route: 065
     Dates: start: 20180928, end: 20180928
  18. LASIX [Concomitant]
     Active Substance: FUROSEMIDE
     Dosage: 20 MG, UNK
     Dates: start: 2008

REACTIONS (33)
  - Dyspnoea [Recovering/Resolving]
  - Asthenia [Recovering/Resolving]
  - Weight increased [Recovered/Resolved]
  - Heart rate increased [Unknown]
  - Malaise [Recovering/Resolving]
  - Dizziness [Recovering/Resolving]
  - Fluid overload [Recovering/Resolving]
  - Hypoxia [Unknown]
  - Arthralgia [Unknown]
  - Feeling jittery [Recovering/Resolving]
  - Hypotension [Recovering/Resolving]
  - Fluid retention [Unknown]
  - Drug interaction [Unknown]
  - Obliterative bronchiolitis [Recovering/Resolving]
  - Interstitial lung disease [Unknown]
  - Panic attack [Unknown]
  - Feeling abnormal [Recovering/Resolving]
  - Pain [Unknown]
  - Oedema peripheral [Unknown]
  - Computerised tomogram thorax abnormal [Unknown]
  - Skin discolouration [Unknown]
  - Condition aggravated [Recovering/Resolving]
  - Cardiac failure [Unknown]
  - Bronchial hyperreactivity [Unknown]
  - Unevaluable event [Unknown]
  - Raynaud^s phenomenon [Recovering/Resolving]
  - Peripheral coldness [Unknown]
  - Muscle tightness [Unknown]
  - Respiratory failure [Recovered/Resolved]
  - Fatigue [Recovering/Resolving]
  - Cognitive disorder [Recovering/Resolving]
  - Blood pressure decreased [Unknown]
  - Limb discomfort [Unknown]

NARRATIVE: CASE EVENT DATE: 201808
